FAERS Safety Report 7606394-8 (Version None)
Quarter: 2011Q3

REPORT INFORMATION
  Report Type: 
  Country: None (occurrence: None)
  Receive Date: 20110713
  Receipt Date: 20110711
  Transmission Date: 20111222
  Serious: Yes (Hospitalization)
  Sender: FDA-Public Use
  Company Number: SE-PFIZER INC-2011155515

PATIENT
  Age: 80 Year
  Sex: Female

DRUGS (14)
  1. ARTELAC [Concomitant]
     Dosage: UNK
  2. DUROFERON [Concomitant]
     Dosage: UNK
  3. OXYCONTIN [Concomitant]
     Dosage: UNK
  4. MOVIPREP [Concomitant]
     Dosage: UNK
  5. METOPROLOL [Concomitant]
     Dosage: UNK
  6. BEHEPAN [Concomitant]
     Dosage: UNK
  7. FUROSEMIDE [Concomitant]
     Dosage: 500 MG, UNK
  8. ALVEDON [Concomitant]
     Dosage: UNK
  9. OMEPRAZOLE [Concomitant]
     Dosage: UNK
  10. LYRICA [Suspect]
     Dosage: 75MG DAILY
     Route: 048
     Dates: start: 20110504, end: 20110514
  11. ASPIRIN [Concomitant]
     Dosage: UNK
  12. PREDNISOLONE [Concomitant]
     Dosage: UNK
  13. FOLIC ACID [Concomitant]
     Dosage: UNK
  14. CALCICHEW-D3 [Concomitant]
     Dosage: UNK

REACTIONS (2)
  - MUSCLE CONTRACTIONS INVOLUNTARY [None]
  - DEPRESSED LEVEL OF CONSCIOUSNESS [None]
